FAERS Safety Report 10037541 (Version 1)
Quarter: 2014Q1

REPORT INFORMATION
  Report Type: Spontaneous
  Country: US (occurrence: None)
  Receive Date: 20140325
  Receipt Date: 20140325
  Transmission Date: 20141002
  Serious: Yes (Other)
  Sender: FDA-Public Use
  Company Number: None

PATIENT
  Sex: Female

DRUGS (1)
  1. ENBREL 50MG SURECLICK [Suspect]
     Indication: PSORIATIC ARTHROPATHY
     Dosage: 50MG, ONCE WEEKLY, SQ
     Dates: start: 20140226

REACTIONS (5)
  - Abdominal pain [None]
  - Vomiting [None]
  - Back pain [None]
  - Weight increased [None]
  - Unevaluable event [None]
